FAERS Safety Report 11735537 (Version 1)
Quarter: 2015Q4

REPORT INFORMATION
  Report Type: Spontaneous
  Country: US (occurrence: US)
  Receive Date: 20151113
  Receipt Date: 20151113
  Transmission Date: 20160304
  Serious: No
  Sender: FDA-Public Use
  Company Number: US-JNJFOC-20151011249

PATIENT
  Sex: Male

DRUGS (3)
  1. SSRI (SELECTIVE SEROTONIN REUPTAKE INHIBITOR) [Concomitant]
     Route: 065
  2. RISPERIDONE. [Suspect]
     Active Substance: RISPERIDONE
     Indication: PRODUCT USED FOR UNKNOWN INDICATION
     Route: 065
  3. ADRENERGIC AGENTS, CARDIAC [Concomitant]
     Active Substance: UNSPECIFIED INGREDIENT
     Route: 065

REACTIONS (3)
  - Body mass index increased [Unknown]
  - Weight increased [Unknown]
  - Dysbacteriosis [Unknown]
